FAERS Safety Report 6335025-2 (Version None)
Quarter: 2009Q3

REPORT INFORMATION
  Report Type: 
  Country: None (occurrence: None)
  Receive Date: 20090831
  Receipt Date: 20090823
  Transmission Date: 20100115
  Serious: Yes (Other)
  Sender: FDA-Public Use
  Company Number: AT-AMGEN-UK361866

PATIENT

DRUGS (2)
  1. VECTIBIX [Suspect]
     Indication: DRUG USE FOR UNKNOWN INDICATION
     Route: 065
  2. CAMPTOSAR [Concomitant]
     Route: 065

REACTIONS (1)
  - SUBILEUS [None]
